FAERS Safety Report 9268915 (Version 23)
Quarter: 2017Q1

REPORT INFORMATION
  Report Type: Report from Study
  Country: CA (occurrence: CA)
  Receive Date: 20130503
  Receipt Date: 20170309
  Transmission Date: 20170429
  Serious: Yes (Other)
  Sender: FDA-Public Use
  Company Number: CA-ROCHE-1185133

PATIENT
  Age: 53 Year
  Sex: Female
  Weight: 50 kg

DRUGS (6)
  1. CRANBERRY. [Concomitant]
     Active Substance: CRANBERRY
     Route: 065
  2. PREDNISONE. [Concomitant]
     Active Substance: PREDNISONE
  3. INSULIN [Concomitant]
     Active Substance: INSULIN NOS
  4. D50W [Concomitant]
  5. ACTEMRA [Suspect]
     Active Substance: TOCILIZUMAB
     Indication: RHEUMATOID ARTHRITIS
     Dosage: DATE OF LAST INFUSION:/DEC/2012.
     Route: 042
     Dates: start: 20120523
  6. CYMBALTA [Concomitant]
     Active Substance: DULOXETINE HYDROCHLORIDE

REACTIONS (23)
  - Hypotension [Unknown]
  - Eye infection [Not Recovered/Not Resolved]
  - Cystitis [Not Recovered/Not Resolved]
  - Herpes zoster [Recovered/Resolved]
  - Blood pressure diastolic decreased [Unknown]
  - Heart rate increased [Unknown]
  - Limb injury [Not Recovered/Not Resolved]
  - Blood pressure diastolic decreased [Unknown]
  - Kidney infection [Not Recovered/Not Resolved]
  - Localised infection [Recovering/Resolving]
  - Blood pressure increased [Unknown]
  - Pneumonia [Recovered/Resolved]
  - Generalised tonic-clonic seizure [Recovered/Resolved]
  - Heart rate decreased [Unknown]
  - Respiratory disorder [Not Recovered/Not Resolved]
  - Infusion related reaction [Unknown]
  - Pharyngitis streptococcal [Recovered/Resolved]
  - Fibromyalgia [Not Recovered/Not Resolved]
  - Hypotension [Unknown]
  - Infection [Unknown]
  - Malaise [Unknown]
  - Weight increased [Not Recovered/Not Resolved]
  - Arthralgia [Not Recovered/Not Resolved]

NARRATIVE: CASE EVENT DATE: 2013
